FAERS Safety Report 4968577-5 (Version None)
Quarter: 2006Q2

REPORT INFORMATION
  Report Type: 
  Country: None (occurrence: None)
  Receive Date: 20060411
  Receipt Date: 20060330
  Transmission Date: 20061013
  Serious: Yes (Other)
  Sender: FDA-Public Use
  Company Number: US-JNJFOC-20060400138

PATIENT
  Sex: Female
  Weight: 97.98 kg

DRUGS (4)
  1. REMICADE [Suspect]
     Route: 042
  2. REMICADE [Suspect]
     Route: 042
  3. REMICADE [Suspect]
     Indication: CROHN'S DISEASE
     Route: 042
  4. PENTASA [Concomitant]

REACTIONS (5)
  - ARTHROPATHY [None]
  - DYSPHAGIA [None]
  - MUSCULAR WEAKNESS [None]
  - PAIN [None]
  - THROAT TIGHTNESS [None]
